FAERS Safety Report 5580242-2 (Version None)
Quarter: 2007Q4

REPORT INFORMATION
  Report Type: 
  Country: None (occurrence: None)
  Receive Date: 20071231
  Receipt Date: 20071231
  Transmission Date: 20080405
  Serious: Yes (Life-Threatening)
  Sender: FDA-Public Use
  Company Number: None

PATIENT
  Age: 55 Year
  Sex: Male
  Weight: 103 kg

DRUGS (5)
  1. HYDROMORPHONE HCL [Suspect]
     Indication: BACK PAIN
     Dosage: 1-2 MG Q2-4H PRN
     Dates: start: 20070410, end: 20070411
  2. AZITHROMYCIN [Concomitant]
  3. CEFTRIAXONE [Concomitant]
  4. PROPRANOLOL SR [Concomitant]
  5. PROTONIX [Concomitant]

REACTIONS (1)
  - APNOEA [None]
